FAERS Safety Report 9217296 (Version 1)
Quarter: 2013Q2

REPORT INFORMATION
  Report Type: Spontaneous
  Country: PR (occurrence: US)
  Receive Date: 20130408
  Receipt Date: 20130408
  Transmission Date: 20140414
  Serious: No
  Sender: FDA-Public Use
  Company Number: PR-PFIZER INC-2013109542

PATIENT
  Age: 60 Year
  Sex: Female

DRUGS (1)
  1. LYRICA [Suspect]
     Dosage: UNK

REACTIONS (1)
  - Constipation [Unknown]
